FAERS Safety Report 23076065 (Version 1)
Quarter: 2023Q4

REPORT INFORMATION
  Report Type: Report from Study
  Country: US (occurrence: None)
  Receive Date: 20231017
  Receipt Date: 20231017
  Transmission Date: 20240105
  Serious: Yes (Hospitalization)
  Sender: FDA-Public Use
  Company Number: 2023A226712

PATIENT

DRUGS (1)
  1. SYMBICORT [Suspect]
     Active Substance: BUDESONIDE\FORMOTEROL FUMARATE DIHYDRATE
     Indication: Chronic obstructive pulmonary disease
     Dosage: UNKNOWN UNKNOWN
     Route: 055

REACTIONS (3)
  - Cardiac disorder [Unknown]
  - Illness [Unknown]
  - Product dose omission issue [Unknown]
